FAERS Safety Report 18084522 (Version 1)
Quarter: 2020Q3

REPORT INFORMATION
  Report Type: Spontaneous
  Country: GB (occurrence: GB)
  Receive Date: 20200729
  Receipt Date: 20200729
  Transmission Date: 20201103
  Serious: Yes (Other)
  Sender: FDA-Public Use
  Company Number: GB-TEVA-2020-GB-1805785

PATIENT
  Age: 51 Year
  Sex: Female
  Weight: 96.16 kg

DRUGS (5)
  1. TIOTROPIUM BROMIDE [Concomitant]
     Active Substance: TIOTROPIUM BROMIDE
  2. TRAMADOL HYDROCHLORIDE. [Suspect]
     Active Substance: TRAMADOL HYDROCHLORIDE
     Indication: ARTHRALGIA
     Dosage: 50 MG
     Route: 048
     Dates: start: 20200703, end: 20200703
  3. LEVOTHYROXINE SODIUM. [Concomitant]
     Active Substance: LEVOTHYROXINE SODIUM
  4. MONTELUKAST SODIUM. [Concomitant]
     Active Substance: MONTELUKAST SODIUM
  5. LEVETIRACETAM ACCORD [Concomitant]
     Active Substance: LEVETIRACETAM

REACTIONS (3)
  - Swelling face [Recovered/Resolved]
  - Wheezing [Recovered/Resolved with Sequelae]
  - Pruritus [Recovered/Resolved]

NARRATIVE: CASE EVENT DATE: 20200703
